FAERS Safety Report 7428014-8 (Version None)
Quarter: 2011Q2

REPORT INFORMATION
  Report Type: 
  Country: None (occurrence: None)
  Receive Date: 20110418
  Receipt Date: 20110418
  Transmission Date: 20111010
  Serious: Yes (Other)
  Sender: FDA-Public Use
  Company Number: None

PATIENT

DRUGS (1)
  1. CONCERTA [Suspect]
     Indication: ATTENTION DEFICIT/HYPERACTIVITY DISORDER
     Dosage: 1 CAPSULE 1 X DAY
     Dates: start: 20110408, end: 20110408

REACTIONS (13)
  - POLLAKIURIA [None]
  - HEART RATE INCREASED [None]
  - CONFUSIONAL STATE [None]
  - DIZZINESS [None]
  - HEADACHE [None]
  - DYSPNOEA [None]
  - DYSKINESIA [None]
  - HALLUCINATION [None]
  - CHEST PAIN [None]
  - DRY MOUTH [None]
  - AGITATION [None]
  - ABDOMINAL PAIN UPPER [None]
  - INSOMNIA [None]
